FAERS Safety Report 19931374 (Version 1)
Quarter: 2021Q4

REPORT INFORMATION
  Report Type: Spontaneous
  Country: US (occurrence: US)
  Receive Date: 20211008
  Receipt Date: 20211008
  Transmission Date: 20220303
  Serious: Yes (Hospitalization)
  Sender: FDA-Public Use
  Company Number: US-ROCHE-2929267

PATIENT
  Sex: Female
  Weight: 81.19 kg

DRUGS (6)
  1. RITUXAN [Suspect]
     Active Substance: RITUXIMAB
     Indication: Relapsing-remitting multiple sclerosis
     Dosage: MOST RECENT INFUSIONS OF RITUXIMAB WAS ON 23/SEP/2020, 26/JAN/2021 AND 03/AUG/2021
     Route: 042
     Dates: start: 20160115
  2. XANAX [Concomitant]
     Active Substance: ALPRAZOLAM
  3. CARDIZEM [Concomitant]
     Active Substance: DILTIAZEM HYDROCHLORIDE
  4. FLOVENT [Concomitant]
     Active Substance: FLUTICASONE PROPIONATE
  5. NAPROXEN [Concomitant]
     Active Substance: NAPROXEN
  6. PROTONIX [Concomitant]
     Active Substance: PANTOPRAZOLE SODIUM

REACTIONS (2)
  - COVID-19 [Unknown]
  - Off label use [Unknown]
